FAERS Safety Report 11724860 (Version 2)
Quarter: 2016Q1

REPORT INFORMATION
  Report Type: Spontaneous
  Country: US (occurrence: US)
  Receive Date: 20151111
  Receipt Date: 20160203
  Transmission Date: 20160525
  Serious: No
  Sender: FDA-Public Use
  Company Number: US-UCBSA-2014008425

PATIENT
  Age: 25 Year
  Sex: Male

DRUGS (4)
  1. KEPPRA XR [Suspect]
     Active Substance: LEVETIRACETAM
     Indication: SEIZURE
     Dosage: 750 MG, UNK
     Dates: start: 2006
  2. KEPPRA XR [Suspect]
     Active Substance: LEVETIRACETAM
     Dosage: 750 MG, 2 TABLETS DAILY
  3. VIMPAT [Suspect]
     Active Substance: LACOSAMIDE
     Indication: SEIZURE
     Dosage: 100 MG, UNK
     Dates: start: 2007
  4. VIMPAT [Suspect]
     Active Substance: LACOSAMIDE
     Dosage: 100 MG, 2 TABLETS DAILY

REACTIONS (3)
  - Somnolence [Unknown]
  - Seizure [Not Recovered/Not Resolved]
  - Vomiting [Unknown]

NARRATIVE: CASE EVENT DATE: 20150322
